FAERS Safety Report 25626453 (Version 1)
Quarter: 2025Q3

REPORT INFORMATION
  Report Type: Spontaneous
  Country: EU (occurrence: EU)
  Receive Date: 20250731
  Receipt Date: 20250731
  Transmission Date: 20251021
  Serious: Yes (Other)
  Sender: TAKEDA
  Company Number: EU-002147023-NVSC2025NL112004

PATIENT
  Sex: Male

DRUGS (9)
  1. ICLUSIG [Suspect]
     Active Substance: PONATINIB HYDROCHLORIDE
     Indication: Product used for unknown indication
  2. IMATINIB [Suspect]
     Active Substance: IMATINIB
     Indication: Philadelphia positive acute lymphocytic leukaemia
  3. IMATINIB [Suspect]
     Active Substance: IMATINIB
     Indication: B-cell type acute leukaemia
     Dosage: 400 MILLIGRAM, QD
  4. DASATINIB [Suspect]
     Active Substance: DASATINIB
     Indication: Philadelphia positive acute lymphocytic leukaemia
     Dosage: 140 MILLIGRAM, QD
  5. DASATINIB [Suspect]
     Active Substance: DASATINIB
     Indication: B-cell type acute leukaemia
  6. NILOTINIB [Suspect]
     Active Substance: NILOTINIB
     Indication: Philadelphia positive acute lymphocytic leukaemia
     Dosage: 600 MILLIGRAM, QD
  7. NILOTINIB [Suspect]
     Active Substance: NILOTINIB
     Indication: B-cell type acute leukaemia
  8. Natrium phosphate [Concomitant]
     Indication: Product used for unknown indication
  9. CHOLECALCIFEROL [Concomitant]
     Active Substance: CHOLECALCIFEROL
     Indication: Product used for unknown indication

REACTIONS (8)
  - Cytopenia [Unknown]
  - Torsade de pointes [Unknown]
  - Hypomagnesaemia [Unknown]
  - Drug intolerance [Unknown]
  - Myalgia [Unknown]
  - Muscle spasms [Unknown]
  - Hypophosphataemia [Unknown]
  - Pleural effusion [Unknown]
